FAERS Safety Report 8307431-8 (Version None)
Quarter: 2012Q2

REPORT INFORMATION
  Report Type: 
  Country: None (occurrence: None)
  Receive Date: 20120424
  Receipt Date: 20120416
  Transmission Date: 20120825
  Serious: Yes (Other)
  Sender: FDA-Public Use
  Company Number: PHHY2012MX033980

PATIENT
  Sex: Female

DRUGS (2)
  1. LEXOTAN [Concomitant]
     Indication: SLEEP DISORDER THERAPY
     Dosage: 1 DF, DAILY
  2. EXFORGE HCT [Suspect]
     Indication: HYPERTENSION
     Dosage: 1 DF (320/10/25 MG), DAILY
     Dates: start: 20110701

REACTIONS (1)
  - HIP FRACTURE [None]
